FAERS Safety Report 19025525 (Version 1)
Quarter: 2021Q1

REPORT INFORMATION
  Report Type: Report from Study
  Country: US (occurrence: US)
  Receive Date: 20210318
  Receipt Date: 20210318
  Transmission Date: 20210420
  Serious: Yes (Death, Other)
  Sender: FDA-Public Use
  Company Number: US-BAUSCH-BL-2021-008972

PATIENT
  Age: 76 Year
  Sex: Male

DRUGS (1)
  1. XIFAXAN [Suspect]
     Active Substance: RIFAXIMIN
     Indication: PRODUCT USED FOR UNKNOWN INDICATION
     Route: 048
     Dates: end: 202102

REACTIONS (5)
  - Hospice care [Unknown]
  - Unresponsive to stimuli [Unknown]
  - Therapy interrupted [Unknown]
  - Feeding disorder [Unknown]
  - Death [Fatal]

NARRATIVE: CASE EVENT DATE: 2021
